FAERS Safety Report 18416260 (Version 1)
Quarter: 2020Q4

REPORT INFORMATION
  Report Type: Spontaneous
  Country: FR (occurrence: FR)
  Receive Date: 20201022
  Receipt Date: 20201022
  Transmission Date: 20210114
  Serious: Yes (Other)
  Sender: FDA-Public Use
  Company Number: FR-ASTRAZENECA-2020SF33242

PATIENT
  Age: 46 Year
  Sex: Female
  Weight: 160 kg

DRUGS (12)
  1. XEROQUEL [Suspect]
     Active Substance: QUETIAPINE FUMARATE
     Indication: AFFECTIVE DISORDER
     Route: 048
     Dates: start: 20200926
  2. IMOVANE [Concomitant]
     Active Substance: ZOPICLONE
     Indication: INSOMNIA
     Route: 048
     Dates: start: 20200921, end: 20200928
  3. FLECAINE [Suspect]
     Active Substance: FLECAINIDE
     Indication: TACHYCARDIA
     Route: 048
     Dates: start: 20140101, end: 20200930
  4. PROZAC [Suspect]
     Active Substance: FLUOXETINE HYDROCHLORIDE
     Indication: DEPRESSION
     Route: 048
     Dates: start: 20200915
  5. THERALENE [Suspect]
     Active Substance: TRIMEPRAZINE
     Indication: INSOMNIA
     Route: 048
     Dates: start: 20200901
  6. PARACETAMOL [Concomitant]
     Active Substance: ACETAMINOPHEN
     Indication: GAIT DISTURBANCE
     Dosage: 500.0MG UNKNOWN
     Route: 048
  7. CORGARD [Suspect]
     Active Substance: NADOLOL
     Indication: TACHYCARDIA
     Route: 048
     Dates: start: 20140101, end: 20200930
  8. PREVISCAN [Concomitant]
     Indication: COAGULOPATHY
     Route: 048
     Dates: start: 20200923
  9. LEPTICUR [Concomitant]
     Active Substance: TROPATEPINE HYDROCHLORIDE
     Indication: NEUROLEPTIC MALIGNANT SYNDROME
     Route: 048
     Dates: start: 20200927
  10. LAMOTRIGINE. [Concomitant]
     Active Substance: LAMOTRIGINE
     Indication: BIPOLAR DISORDER
     Route: 048
     Dates: start: 20200924
  11. LOXAPAC [Concomitant]
     Active Substance: LOXAPINE
     Indication: PSYCHOTIC DISORDER
     Dosage: 50.0MG UNKNOWN
     Route: 048
     Dates: start: 20200926
  12. TEMESTA [Concomitant]
     Indication: ANXIETY
     Route: 048
     Dates: start: 20200927

REACTIONS (1)
  - Electrocardiogram QT prolonged [Not Recovered/Not Resolved]

NARRATIVE: CASE EVENT DATE: 20200928
